FAERS Safety Report 8877079 (Version 1)
Quarter: 2012Q4

REPORT INFORMATION
  Report Type: 
  Country: NO (occurrence: NO)
  Receive Date: 20121029
  Receipt Date: 20121029
  Transmission Date: 20130627
  Serious: Yes (Other)
  Sender: FDA-Public Use
  Company Number: NO-BAYER-2012-109729

PATIENT
  Age: 23 Year
  Sex: Female

DRUGS (1)
  1. MIRENA [Suspect]
     Dosage: 20 mcg/24hr, CONT
     Route: 015
     Dates: start: 201209, end: 20121017

REACTIONS (8)
  - Vulval leukoplakia [None]
  - Vulvovaginal pain [None]
  - Urinary tract infection [None]
  - Dysuria [None]
  - Fungal infection [None]
  - Vulvovaginal pruritus [None]
  - Device expulsion [None]
  - Procedural pain [None]
